FAERS Safety Report 14128943 (Version 1)
Quarter: 2017Q4

REPORT INFORMATION
  Report Type: Report from Study
  Country: IT (occurrence: IT)
  Receive Date: 20171026
  Receipt Date: 20171026
  Transmission Date: 20180321
  Serious: Yes (Other)
  Sender: FDA-Public Use
  Company Number: IT-MYLANLABS-2017M1065373

PATIENT
  Age: 82 Year
  Sex: Male

DRUGS (3)
  1. TRAZODONE HYDROCHLORIDE. [Suspect]
     Active Substance: TRAZODONE HYDROCHLORIDE
     Indication: AGITATION
     Dosage: 50 MG, QD
     Route: 048
  2. OLANZAPINE. [Suspect]
     Active Substance: OLANZAPINE
     Indication: AGITATION
     Dosage: 5 MG, QD
     Route: 048
  3. FLURAZEPAM [Suspect]
     Active Substance: FLURAZEPAM\FLURAZEPAM HYDROCHLORIDE
     Indication: INSOMNIA
     Dosage: 30 MG, QD
     Route: 048

REACTIONS (2)
  - Disorientation [Recovered/Resolved]
  - Drug use disorder [Recovered/Resolved]

NARRATIVE: CASE EVENT DATE: 20171007
